FAERS Safety Report 10983316 (Version 1)
Quarter: 2015Q2

REPORT INFORMATION
  Report Type: Spontaneous
  Country: US (occurrence: US)
  Receive Date: 20150403
  Receipt Date: 20150403
  Transmission Date: 20150821
  Serious: No
  Sender: FDA-Public Use
  Company Number: US-PFIZER INC-2015113690

PATIENT

DRUGS (1)
  1. ARGATROBAN. [Suspect]
     Active Substance: ARGATROBAN
     Indication: MEDICAL DEVICE IMPLANTATION
     Dosage: UNK

REACTIONS (2)
  - Therapeutic product ineffective [Recovered/Resolved]
  - Laboratory test abnormal [Recovered/Resolved]
